FAERS Safety Report 7419024-5 (Version None)
Quarter: 2011Q2

REPORT INFORMATION
  Report Type: 
  Country: None (occurrence: None)
  Receive Date: 20110415
  Receipt Date: 20110406
  Transmission Date: 20111010
  Serious: Yes (Other)
  Sender: FDA-Public Use
  Company Number: US-JNJFOC-20110406123

PATIENT
  Sex: Female

DRUGS (7)
  1. IBUPROFEN [Suspect]
     Indication: PAIN
  2. FLEXERIL [Suspect]
     Indication: PAIN
  3. DARVOCET [Suspect]
     Indication: PAIN
  4. DARVON [Suspect]
     Indication: PAIN
  5. LOTRIMIN [Suspect]
     Indication: PAIN
  6. OXYCODONE [Suspect]
     Indication: PAIN
  7. OXYCONTIN [Suspect]
     Indication: PAIN

REACTIONS (5)
  - INCONTINENCE [None]
  - CONFUSIONAL STATE [None]
  - DIZZINESS [None]
  - DELIRIUM [None]
  - DRUG INEFFECTIVE [None]
